FAERS Safety Report 11353095 (Version 1)
Quarter: 2015Q3

REPORT INFORMATION
  Report Type: Spontaneous
  Country: US (occurrence: US)
  Receive Date: 20150807
  Receipt Date: 20150807
  Transmission Date: 20151125
  Serious: No
  Sender: FDA-Public Use
  Company Number: US-JNJFOC-20150712019

PATIENT
  Age: 67 Year
  Sex: Female

DRUGS (2)
  1. WOMENS ROGAINE [Suspect]
     Active Substance: MINOXIDIL
     Route: 061
  2. WOMENS ROGAINE [Suspect]
     Active Substance: MINOXIDIL
     Indication: ALOPECIA
     Dosage: A LITTLE LESS THAN DIRECTION FOR APPROXIMATELY A YEAR
     Route: 061

REACTIONS (3)
  - Incorrect dose administered [Recovering/Resolving]
  - Hair texture abnormal [Recovering/Resolving]
  - Hair disorder [Recovering/Resolving]
